FAERS Safety Report 16272285 (Version 1)
Quarter: 2019Q2

REPORT INFORMATION
  Report Type: Spontaneous
  Country: US (occurrence: US)
  Receive Date: 20190503
  Receipt Date: 20190503
  Transmission Date: 20190711
  Serious: Yes (Other)
  Sender: FDA-Public Use
  Company Number: US-FRESENIUS KABI-FK201905143

PATIENT
  Age: 16 Year
  Sex: Female

DRUGS (2)
  1. CYTARABINE (MANUFACTURER UNKNOWN) [Suspect]
     Active Substance: CYTARABINE
     Indication: ACUTE LEUKAEMIA
     Route: 065
  2. CLOFARABINE. [Suspect]
     Active Substance: CLOFARABINE
     Indication: ACUTE LEUKAEMIA
     Route: 065

REACTIONS (1)
  - Toxic leukoencephalopathy [Recovered/Resolved]
